FAERS Safety Report 7011764-5 (Version None)
Quarter: 2010Q3

REPORT INFORMATION
  Report Type: 
  Country: None (occurrence: None)
  Receive Date: 20100923
  Receipt Date: 20090531
  Transmission Date: 20110219
  Serious: No
  Sender: FDA-Public Use
  Company Number: US-WYE-H09591209

PATIENT
  Sex: Female

DRUGS (1)
  1. PREMARIN [Suspect]
     Indication: OESTROGEN REPLACEMENT THERAPY
     Route: 048

REACTIONS (5)
  - ANGER [None]
  - CRYING [None]
  - DRUG WITHDRAWAL SYNDROME [None]
  - HOT FLUSH [None]
  - NIGHT SWEATS [None]
